FAERS Safety Report 11024845 (Version 1)
Quarter: 2015Q2

REPORT INFORMATION
  Report Type: Spontaneous
  Country: JP (occurrence: JP)
  Receive Date: 20150414
  Receipt Date: 20150414
  Transmission Date: 20150821
  Serious: Yes (Hospitalization)
  Sender: FDA-Public Use
  Company Number: JP-SA-2015SA035458

PATIENT
  Age: 81 Year
  Sex: Female

DRUGS (7)
  1. LANTUS [Suspect]
     Active Substance: INSULIN GLARGINE
     Indication: TYPE 1 DIABETES MELLITUS
     Route: 058
     Dates: start: 20090318
  2. LANTUS [Suspect]
     Active Substance: INSULIN GLARGINE
     Indication: TYPE 1 DIABETES MELLITUS
     Dosage: DOSE:5 UNIT(S)
     Route: 058
     Dates: start: 20140807, end: 20150318
  3. APIDRA SOLOSTAR [Suspect]
     Active Substance: INSULIN GLULISINE
     Indication: TYPE 1 DIABETES MELLITUS
     Dosage: DOSE:5 UNIT(S)
     Route: 058
     Dates: start: 20140807, end: 20150318
  4. SOLOSTAR [Concomitant]
     Active Substance: DEVICE
     Indication: TYPE 1 DIABETES MELLITUS
     Route: 058
     Dates: start: 20130807
  5. HUMALOG [Concomitant]
     Active Substance: INSULIN LISPRO
     Indication: TYPE 1 DIABETES MELLITUS
     Dates: start: 20090318
  6. SOLOSTAR [Concomitant]
     Active Substance: DEVICE
     Indication: TYPE 1 DIABETES MELLITUS
     Route: 058
     Dates: start: 20140807, end: 20150318
  7. APIDRA SOLOSTAR [Suspect]
     Active Substance: INSULIN GLULISINE
     Indication: TYPE 1 DIABETES MELLITUS
     Dosage: DOSE:5 UNIT(S)
     Route: 058
     Dates: start: 20130807

REACTIONS (1)
  - Erythema multiforme [Not Recovered/Not Resolved]

NARRATIVE: CASE EVENT DATE: 20140305
